FAERS Safety Report 21696836 (Version 3)
Quarter: 2022Q4

REPORT INFORMATION
  Report Type: Report from Study
  Country: US (occurrence: US)
  Receive Date: 20221208
  Receipt Date: 20221230
  Transmission Date: 20230113
  Serious: Yes (Hospitalization, Other)
  Sender: FDA-Public Use
  Company Number: US-ABBVIE-4227339

PATIENT
  Age: 73 Year
  Sex: Female

DRUGS (1)
  1. HUMIRA [Suspect]
     Active Substance: ADALIMUMAB
     Indication: Rheumatoid arthritis
     Dosage: CITRATE FREE,STRENGTH: 40MG
     Route: 058
     Dates: start: 20171002

REACTIONS (5)
  - Pneumonia [Recovering/Resolving]
  - Asthenia [Unknown]
  - Pulmonary hypertension [Unknown]
  - Respiratory syncytial virus infection [Recovering/Resolving]
  - Dysphonia [Unknown]

NARRATIVE: CASE EVENT DATE: 20221207
